FAERS Safety Report 18380364 (Version 1)
Quarter: 2020Q4

REPORT INFORMATION
  Report Type: Other
  Country: US (occurrence: US)
  Receive Date: 20201013
  Receipt Date: 20201013
  Transmission Date: 20210114
  Serious: Yes (Hospitalization, Other)
  Sender: FDA-Public Use
  Company Number: US-ROCHE-2689462

PATIENT
  Age: 63 Year
  Sex: Female
  Weight: 67.19 kg

DRUGS (5)
  1. VARENICLINE [Concomitant]
     Active Substance: VARENICLINE
  2. OCREVUS [Suspect]
     Active Substance: OCRELIZUMAB
     Indication: RELAPSING-REMITTING MULTIPLE SCLEROSIS
     Route: 042
     Dates: start: 20171230
  3. PREGABALIN. [Concomitant]
     Active Substance: PREGABALIN
  4. ALPRAZOLAM. [Concomitant]
     Active Substance: ALPRAZOLAM
  5. OCREVUS [Suspect]
     Active Substance: OCRELIZUMAB
     Dosage: THEN SUBSEQUENT DOSE 600 MG EVERY 6 MONTHS
     Route: 042
     Dates: start: 20180102

REACTIONS (6)
  - Dysphagia [Not Recovered/Not Resolved]
  - Chronic obstructive pulmonary disease [Not Recovered/Not Resolved]
  - Pneumonia [Recovered/Resolved]
  - Colon adenoma [Not Recovered/Not Resolved]
  - Multiple sclerosis [Unknown]
  - Anal incontinence [Recovered/Resolved]

NARRATIVE: CASE EVENT DATE: 20180517
